FAERS Safety Report 4976371-4 (Version None)
Quarter: 2006Q2

REPORT INFORMATION
  Report Type: 
  Country: None (occurrence: None)
  Receive Date: 20060412
  Receipt Date: 20060327
  Transmission Date: 20061013
  Serious: No
  Sender: FDA-Public Use
  Company Number: US017239

PATIENT
  Age: 16 Month
  Sex: Female

DRUGS (1)
  1. ACTIQ [Suspect]
     Dates: start: 20040915, end: 20040915

REACTIONS (3)
  - ACCIDENTAL DRUG INTAKE BY CHILD [None]
  - LETHARGY [None]
  - SOMNOLENCE [None]
